FAERS Safety Report 6577302-6 (Version None)
Quarter: 2010Q1

REPORT INFORMATION
  Report Type: 
  Country: None (occurrence: None)
  Receive Date: 20100210
  Receipt Date: 20100208
  Transmission Date: 20100710
  Serious: Yes (Death, Life-Threatening, Other)
  Sender: FDA-Public Use
  Company Number: PHHO2009US11908

PATIENT
  Sex: Female
  Weight: 52.2 kg

DRUGS (13)
  1. AFINITOR [Suspect]
     Indication: NEUROENDOCRINE CARCINOMA
     Dosage: 10 MG, QD
     Route: 048
     Dates: start: 20090819, end: 20090911
  2. AFINITOR [Suspect]
     Dosage: NO TREATMENT
     Dates: start: 20090912
  3. AFINITOR [Suspect]
     Dosage: UNK
     Dates: end: 20091209
  4. SORAFENIB COMP-SORA+TAB [Suspect]
     Indication: NEUROENDOCRINE CARCINOMA
     Dosage: 200 MG, BID
     Route: 048
     Dates: start: 20090819, end: 20090911
  5. SORAFENIB COMP-SORA+TAB [Suspect]
     Dosage: NO TREATMENT
     Dates: start: 20090912
  6. OCTREOTIDE ACETATE [Concomitant]
  7. OMEPRAZOLE [Concomitant]
  8. PROPRANOLOL [Concomitant]
  9. RALOXIFENE HCL [Concomitant]
  10. IBUPROFEN [Concomitant]
  11. CREON [Concomitant]
  12. ATIVAN [Concomitant]
  13. ACYCLOVIR [Concomitant]

REACTIONS (7)
  - DIARRHOEA [None]
  - ELECTROLYTE IMBALANCE [None]
  - HERPES ZOSTER [None]
  - HYPOCALCAEMIA [None]
  - HYPOPHOSPHATAEMIA [None]
  - MALIGNANT NEOPLASM PROGRESSION [None]
  - WEIGHT DECREASED [None]
